FAERS Safety Report 5639312-2 (Version None)
Quarter: 2008Q1

REPORT INFORMATION
  Report Type: 
  Country: None (occurrence: None)
  Receive Date: 20080222
  Receipt Date: 20080211
  Transmission Date: 20080703
  Serious: Yes (Hospitalization, Other)
  Sender: FDA-Public Use
  Company Number: 107#08#2008-00810

PATIENT
  Age: 83 Year
  Sex: Male

DRUGS (1)
  1. AMIODARONE HCL [Suspect]
     Indication: VENTRICULAR TACHYCARDIA

REACTIONS (3)
  - HYPERGLOBULINAEMIA [None]
  - HYPOTHYROIDISM [None]
  - PULMONARY TOXICITY [None]
